FAERS Safety Report 9159938 (Version 2)
Quarter: 2013Q2

REPORT INFORMATION
  Report Type: Report from Study
  Country: DE (occurrence: DE)
  Receive Date: 20130313
  Receipt Date: 20130502
  Transmission Date: 20140414
  Serious: Yes (Hospitalization, Other)
  Sender: FDA-Public Use
  Company Number: DE-UCBSA-080471

PATIENT
  Sex: Female

DRUGS (4)
  1. VIMPAT [Suspect]
     Indication: EPILEPSY
     Dosage: TOTAL DAILY DOSE: 50 MG/DAY
     Dates: start: 20081112
  2. VIMPAT [Suspect]
     Indication: EPILEPSY
     Dosage: TOTAL DAILY DOSE: 400 MG/DAY
  3. PREGABALIN [Concomitant]
     Indication: EPILEPSY
     Dosage: TOTAL DAILY DOSE: 600 MG
  4. PREGABALIN [Concomitant]
     Indication: EPILEPSY
     Dosage: REDUCED DOSE: 250 MG/DAY

REACTIONS (2)
  - Partial seizures [Unknown]
  - Convulsion [Unknown]
